FAERS Safety Report 9027025 (Version 1)
Quarter: 2013Q1

REPORT INFORMATION
  Report Type: Spontaneous
  Country: DK (occurrence: DK)
  Receive Date: 20130123
  Receipt Date: 20130123
  Transmission Date: 20140127
  Serious: Yes (Disabling)
  Sender: FDA-Public Use
  Company Number: DK-ASTRAZENECA-2013SE02777

PATIENT
  Age: 53 Year
  Sex: Male
  Weight: 72 kg

DRUGS (3)
  1. SPIROCORT [Suspect]
     Indication: CHRONIC OBSTRUCTIVE PULMONARY DISEASE
     Dosage: DOSE: ONE SPRAY WHEN NEEDED. STRENGTH: 0.5 MG / ML
     Route: 055
     Dates: start: 20100101, end: 20101010
  2. SPIROCORT [Suspect]
     Indication: CHRONIC OBSTRUCTIVE PULMONARY DISEASE
     Dosage: DOSE: 1 PUFF 2 TIMES A DAY. STRENGTH: 0.25 MG / ML
     Route: 055
     Dates: start: 20100104, end: 20101010
  3. BRICANYL [Suspect]
     Indication: PRODUCT USED FOR UNKNOWN INDICATION
     Dosage: DOSE: 1 PUFF PN. STRENGTH: 2.5 MG / ML
     Route: 055
     Dates: start: 20080416

REACTIONS (1)
  - Chorioretinopathy [Not Recovered/Not Resolved]
